FAERS Safety Report 5430977-7 (Version None)
Quarter: 2007Q3

REPORT INFORMATION
  Report Type: 
  Country: None (occurrence: None)
  Receive Date: 20070830
  Receipt Date: 20070827
  Transmission Date: 20080115
  Serious: Yes (Death)
  Sender: FDA-Public Use
  Company Number: A0676668A

PATIENT
  Age: 59 Year
  Sex: Male

DRUGS (2)
  1. PARNATE [Suspect]
     Indication: DEPRESSION
     Dosage: 2TAB TWICE PER DAY
     Route: 048
  2. THYROID TAB [Concomitant]
     Route: 065

REACTIONS (1)
  - COMPLETED SUICIDE [None]
